FAERS Safety Report 9532981 (Version 1)
Quarter: 2013Q3

REPORT INFORMATION
  Report Type: Spontaneous
  Country: US (occurrence: None)
  Receive Date: 20130916
  Receipt Date: 20130916
  Transmission Date: 20140515
  Serious: Yes (Hospitalization)
  Sender: FDA-Public Use
  Company Number: IPC201309-000360

PATIENT
  Age: 20 Year
  Sex: Female

DRUGS (4)
  1. ATENOLOL [Suspect]
  2. AMLODIPINE BESILATE [Suspect]
  3. DOXAZOSIN [Suspect]
  4. VALSARTAN [Suspect]

REACTIONS (7)
  - Shock [None]
  - Intestinal ischaemia [None]
  - Toxicity to various agents [None]
  - Pulse abnormal [None]
  - Asthenia [None]
  - Haemodynamic instability [None]
  - Abdominal pain [None]
